FAERS Safety Report 7641487-0 (Version None)
Quarter: 2011Q3

REPORT INFORMATION
  Report Type: 
  Country: None (occurrence: None)
  Receive Date: 20110728
  Receipt Date: 20110722
  Transmission Date: 20111222
  Serious: Yes (Hospitalization)
  Sender: FDA-Public Use
  Company Number: FR-PFIZER INC-2011166722

PATIENT
  Age: 58 Year
  Sex: Male

DRUGS (1)
  1. EFFEXOR [Suspect]
     Dosage: UNK
     Route: 048
     Dates: end: 20110101

REACTIONS (2)
  - LIPASE INCREASED [None]
  - ABDOMINAL PAIN [None]
